FAERS Safety Report 22136139 (Version 3)
Quarter: 2023Q2

REPORT INFORMATION
  Report Type: Spontaneous
  Country: JP (occurrence: JP)
  Receive Date: 20230324
  Receipt Date: 20230428
  Transmission Date: 20230721
  Serious: Yes (Hospitalization)
  Sender: FDA-Public Use
  Company Number: JP-JNJFOC-20230360423

PATIENT
  Age: 64 Year
  Sex: Female

DRUGS (2)
  1. UPTRAVI [Suspect]
     Active Substance: SELEXIPAG
     Indication: Pulmonary arterial hypertension
     Route: 048
     Dates: start: 20221227
  2. UPTRAVI [Suspect]
     Active Substance: SELEXIPAG
     Dosage: UNKNOWN DOSE
     Route: 048

REACTIONS (1)
  - Left ventricular failure [Recovered/Resolved]
